FAERS Safety Report 25658765 (Version 1)
Quarter: 2025Q3

REPORT INFORMATION
  Report Type: Report from Study
  Country: US (occurrence: US)
  Receive Date: 20250808
  Receipt Date: 20250808
  Transmission Date: 20251020
  Serious: Yes (Other)
  Sender: TAKEDA
  Company Number: US-TAKEDA-2025TUS069867

PATIENT
  Age: 38 Year
  Sex: Male

DRUGS (1)
  1. VEDOLIZUMAB [Suspect]
     Active Substance: VEDOLIZUMAB
     Indication: Product used for unknown indication

REACTIONS (6)
  - Diabetes mellitus [Unknown]
  - Inguinal hernia [Unknown]
  - Hepatic steatosis [Unknown]
  - Renal cyst [Unknown]
  - Abdominal pain upper [Unknown]
  - Stress [Unknown]

NARRATIVE: CASE EVENT DATE: 20250415
